FAERS Safety Report 9929877 (Version 2)
Quarter: 2014Q1

REPORT INFORMATION
  Report Type: Spontaneous
  Country: US (occurrence: US)
  Receive Date: 20140227
  Receipt Date: 20140227
  Transmission Date: 20141002
  Serious: Yes (Other)
  Sender: FDA-Public Use
  Company Number: US-GILEAD-2012-0061248

PATIENT
  Age: 38 Year
  Sex: Male
  Weight: 125.17 kg

DRUGS (5)
  1. COMPLERA [Suspect]
     Indication: HIV INFECTION
     Dosage: 1 DF, QD
     Route: 048
     Dates: start: 20120525, end: 20120914
  2. TRUVADA [Suspect]
     Indication: HIV INFECTION
     Dosage: UNK
     Dates: start: 201211, end: 20121205
  3. ISENTRESS [Concomitant]
     Dosage: UNK
     Dates: start: 201211, end: 20121205
  4. PHENERGAN                          /00033001/ [Concomitant]
     Dosage: UNK
  5. IBUPROFEN [Concomitant]

REACTIONS (5)
  - Aspartate aminotransferase increased [Recovered/Resolved]
  - Alanine aminotransferase increased [Recovered/Resolved]
  - Aspartate aminotransferase increased [Unknown]
  - Alanine aminotransferase increased [Unknown]
  - Thrombocytopenia [Recovered/Resolved]
